FAERS Safety Report 8997317 (Version 2)
Quarter: 2013Q1

REPORT INFORMATION
  Report Type: Spontaneous
  Country: US (occurrence: US)
  Receive Date: 20130104
  Receipt Date: 20130110
  Transmission Date: 20140127
  Serious: Yes (Death)
  Sender: FDA-Public Use
  Company Number: US-009507513-1301USA001068

PATIENT
  Age: 68 Year
  Sex: Male

DRUGS (7)
  1. PROVENTIL [Suspect]
     Indication: CHRONIC OBSTRUCTIVE PULMONARY DISEASE
     Dosage: TWO PUFFS, QID
     Route: 055
  2. SYMBICORT [Concomitant]
  3. PHENOBARBITAL [Concomitant]
  4. TRIAMCINOLONE [Concomitant]
  5. PHENYTOIN SODIUM [Concomitant]
  6. ROPINIROLE [Concomitant]
  7. SPIRIVA [Concomitant]

REACTIONS (1)
  - Cardiovascular disorder [Fatal]
